FAERS Safety Report 16820895 (Version 1)
Quarter: 2019Q3

REPORT INFORMATION
  Report Type: Spontaneous
  Country: US (occurrence: US)
  Receive Date: 20190726
  Receipt Date: 20190726
  Transmission Date: 20191005
  Serious: Yes (Hospitalization)
  Sender: FDA-Public Use
  Company Number: None

PATIENT
  Age: 67 Year
  Sex: Female

DRUGS (2)
  1. CAPECITABINE 500MG [Suspect]
     Active Substance: CAPECITABINE
     Indication: BREAST CANCER FEMALE
     Dosage: ?          OTHER DOSE:4 TABS IN AM;OTHER FREQUENCY:DAILY ON DAYS 1-14;?
     Route: 048
     Dates: start: 20190523
  2. CAPECITABINE 500MG [Suspect]
     Active Substance: CAPECITABINE
     Dosage: ?          OTHER DOSE:5 TABS IN PM ;OTHER FREQUENCY:DAILY ON DAYS 1-14;?
     Route: 048
     Dates: start: 20190523

REACTIONS (2)
  - Thrombosis [None]
  - Hypoaesthesia [None]

NARRATIVE: CASE EVENT DATE: 201907
